FAERS Safety Report 19444920 (Version 1)
Quarter: 2021Q2

REPORT INFORMATION
  Report Type: Spontaneous
  Country: US (occurrence: US)
  Receive Date: 20210621
  Receipt Date: 20210621
  Transmission Date: 20210717
  Serious: Yes (Hospitalization, Other)
  Sender: FDA-Public Use
  Company Number: US-SEATTLE GENETICS-2021SGN03264

PATIENT
  Age: 55 Year
  Sex: Female

DRUGS (4)
  1. OGIVRI [Suspect]
     Active Substance: TRASTUZUMAB-DKST
     Dosage: 576 UNK
     Route: 042
     Dates: start: 20210305
  2. CAPECITABINE. [Suspect]
     Active Substance: CAPECITABINE
     Indication: PRODUCT USED FOR UNKNOWN INDICATION
     Dosage: UNK
  3. TUKYSA [Suspect]
     Active Substance: TUCATINIB
     Indication: PRODUCT USED FOR UNKNOWN INDICATION
  4. OGIVRI [Suspect]
     Active Substance: TRASTUZUMAB-DKST
     Indication: BREAST CANCER METASTATIC
     Dosage: 760 MG, Q2WEEKS
     Route: 042
     Dates: start: 20210303

REACTIONS (4)
  - Diarrhoea [Unknown]
  - Catheter site infection [Unknown]
  - Gastrointestinal toxicity [Unknown]
  - Dehydration [Unknown]
